FAERS Safety Report 22640576 (Version 1)
Quarter: 2023Q2

REPORT INFORMATION
  Report Type: Spontaneous
  Country: US (occurrence: US)
  Receive Date: 20230626
  Receipt Date: 20230626
  Transmission Date: 20230721
  Serious: Yes (Other)
  Sender: FDA-Public Use
  Company Number: US-BAXTER-2023BAX024509

PATIENT
  Sex: Female

DRUGS (1)
  1. PENICILLIN G [Suspect]
     Active Substance: PENICILLIN G
     Indication: Congenital syphilis
     Dosage: EVERY 12 H AT 50,000 U/KG FOR 7 DAYS AND THEN CHANGED TO EVERY 8 H FOR 3 DAYS (TOTAL 10-DAY COURSE)
     Route: 042

REACTIONS (2)
  - Necrotising colitis [Recovered/Resolved]
  - Haematochezia [Unknown]
